FAERS Safety Report 8559776-4 (Version None)
Quarter: 2012Q3

REPORT INFORMATION
  Report Type: 
  Country: None (occurrence: None)
  Receive Date: 20120802
  Receipt Date: 20120730
  Transmission Date: 20120928
  Serious: Yes (Other)
  Sender: FDA-Public Use
  Company Number: US-PFIZER INC-2012184660

PATIENT
  Sex: Female
  Weight: 92.063 kg

DRUGS (5)
  1. RANITIDINE [Concomitant]
     Dosage: UNK
  2. LYRICA [Suspect]
     Indication: COMPLEX REGIONAL PAIN SYNDROME
     Dosage: UNK
     Route: 048
     Dates: start: 20070101, end: 20100101
  3. PREDNISONE [Suspect]
     Dosage: UNK
  4. LYRICA [Suspect]
     Indication: FIBROMYALGIA
  5. LISINOPRIL [Concomitant]
     Dosage: UNK

REACTIONS (2)
  - DIABETES MELLITUS [None]
  - WEIGHT INCREASED [None]
